FAERS Safety Report 8192906-5 (Version None)
Quarter: 2012Q1

REPORT INFORMATION
  Report Type: 
  Country: None (occurrence: None)
  Receive Date: 20120308
  Receipt Date: 20120228
  Transmission Date: 20120608
  Serious: Yes (Hospitalization)
  Sender: FDA-Public Use
  Company Number: US-JNJFOC-20120214514

PATIENT
  Sex: Female

DRUGS (1)
  1. XARELTO [Suspect]
     Indication: SURGERY
     Route: 048
     Dates: start: 20120201, end: 20120201

REACTIONS (1)
  - PULMONARY EMBOLISM [None]
